FAERS Safety Report 10610544 (Version 1)
Quarter: 2014Q4

REPORT INFORMATION
  Report Type: Spontaneous
  Country: IN (occurrence: None)
  Receive Date: 20141124
  Receipt Date: 20141124
  Transmission Date: 20150529
  Serious: Yes (Other)
  Sender: FDA-Public Use
  Company Number: IN-ZYDUS-004718

PATIENT

DRUGS (4)
  1. TEMOZOLOMIDE (TEMOZOLOMIDE) [Suspect]
     Active Substance: TEMOZOLOMIDE
     Route: 048
  2. ETOPOSIDE (ETOPOSIDE) [Suspect]
     Active Substance: ETOPOSIDE
     Route: 048
  3. SODIUM VALPROATE (SODIUM VALPROATE) [Suspect]
     Active Substance: VALPROATE SODIUM
     Route: 048
  4. ISOTRETINOIN (ISOTRETINOIN) [Suspect]
     Active Substance: ISOTRETINOIN
     Route: 048

REACTIONS (1)
  - Myelodysplastic syndrome [None]
